FAERS Safety Report 21095462 (Version 2)
Quarter: 2022Q3

REPORT INFORMATION
  Report Type: Spontaneous
  Country: AT (occurrence: AT)
  Receive Date: 20220718
  Receipt Date: 20220909
  Transmission Date: 20221027
  Serious: Yes (Other)
  Sender: FDA-Public Use
  Company Number: AT-AMGEN-AUTSP2022120824

PATIENT
  Age: 56 Year
  Sex: Female

DRUGS (5)
  1. XGEVA [Suspect]
     Active Substance: DENOSUMAB
     Indication: Metastases to bone
     Dosage: UNK, QMO
     Route: 065
     Dates: start: 2019
  2. LISINOPRIL [Concomitant]
     Active Substance: LISINOPRIL
     Indication: Hypertension
     Dosage: 5 MILLIGRAM
  3. CARBOPLATIN [Concomitant]
     Active Substance: CARBOPLATIN
     Dosage: UNK
     Dates: start: 2019
  4. ETOPOSIDE [Concomitant]
     Active Substance: ETOPOSIDE
     Dosage: UNK
     Dates: start: 2019
  5. ATEZOLIZUMAB [Concomitant]
     Active Substance: ATEZOLIZUMAB
     Dosage: UNK
     Dates: start: 2019

REACTIONS (5)
  - Neuropathy peripheral [Recovered/Resolved]
  - Gene mutation [Unknown]
  - General physical health deterioration [Recovered/Resolved]
  - Rash [Recovered/Resolved]
  - Diarrhoea [Recovered/Resolved]

NARRATIVE: CASE EVENT DATE: 20190101
